FAERS Safety Report 5248658-1 (Version None)
Quarter: 2007Q1

REPORT INFORMATION
  Report Type: 
  Country: None (occurrence: None)
  Receive Date: 20070227
  Receipt Date: 20070227
  Transmission Date: 20070707
  Serious: No
  Sender: FDA-Public Use
  Company Number: None

PATIENT
  Sex: Female
  Weight: 13 kg

DRUGS (1)
  1. XOPENEX [Suspect]
     Dosage: 1.25 MG/3 ML FOUR TIMES DAILY INHALATION
     Route: 055
     Dates: start: 20070218

REACTIONS (2)
  - DRUG HYPERSENSITIVITY [None]
  - PHARYNGEAL OEDEMA [None]
